FAERS Safety Report 18511689 (Version 3)
Quarter: 2020Q4

REPORT INFORMATION
  Report Type: Report from Study
  Country: FR (occurrence: FR)
  Receive Date: 20201117
  Receipt Date: 20201224
  Transmission Date: 20210114
  Serious: Yes (Hospitalization, Other)
  Sender: FDA-Public Use
  Company Number: FR-AMGEN-FRACT2020182983

PATIENT
  Age: 40 Year
  Sex: Female
  Weight: 44 kg

DRUGS (8)
  1. AUGMENTIN [Concomitant]
     Active Substance: AMOXICILLIN\CLAVULANATE POTASSIUM
     Indication: DYSPNOEA
     Dosage: UNK
     Dates: start: 20201029
  2. 5 FU [Suspect]
     Active Substance: FLUOROURACIL
     Indication: COLORECTAL CANCER METASTATIC
     Dosage: 572 MILLIGRAM, Q2WK
     Route: 040
     Dates: start: 20200806, end: 20201015
  3. PANITUMUMAB [Suspect]
     Active Substance: PANITUMUMAB
     Indication: COLORECTAL CANCER METASTATIC
     Dosage: 270 MILLIGRAM, Q2WK
     Route: 042
     Dates: start: 20200806, end: 20201015
  4. ELOXATIN [Suspect]
     Active Substance: OXALIPLATIN
     Indication: COLORECTAL CANCER METASTATIC
     Dosage: 121.5 MILLIGRAM, Q2WK
     Route: 042
     Dates: start: 20200806, end: 20201015
  5. LEUCOVORIN [FOLINIC ACID] [Suspect]
     Active Substance: LEUCOVORIN
     Indication: COLORECTAL CANCER METASTATIC
     Dosage: 572 MILLIGRAM, Q2WK
     Route: 042
     Dates: start: 20200806, end: 20201015
  6. 5 FU [Suspect]
     Active Substance: FLUOROURACIL
     Dosage: 3432 MILLIGRAM, Q2WK
     Route: 042
     Dates: start: 20200806, end: 20201015
  7. CLAMOXYL [AMOXICILLIN] [Concomitant]
     Active Substance: AMOXICILLIN
     Indication: LUNG DISORDER
     Dosage: UNK
     Route: 048
     Dates: start: 20201026
  8. CLAMOXYL [AMOXICILLIN] [Concomitant]
     Active Substance: AMOXICILLIN
     Indication: DYSPNOEA

REACTIONS (1)
  - Interstitial lung disease [Recovered/Resolved with Sequelae]

NARRATIVE: CASE EVENT DATE: 20201105
